FAERS Safety Report 22610837 (Version 1)
Quarter: 2023Q2

REPORT INFORMATION
  Report Type: Spontaneous
  Country: CN (occurrence: CN)
  Receive Date: 20230616
  Receipt Date: 20230616
  Transmission Date: 20230721
  Serious: Yes (Hospitalization)
  Sender: FDA-Public Use
  Company Number: CN-BRACCO-2023CN02897

PATIENT
  Age: 50 Year
  Sex: Male

DRUGS (1)
  1. GADOBENATE DIMEGLUMINE [Suspect]
     Active Substance: GADOBENATE DIMEGLUMINE
     Indication: Diagnostic procedure
     Dosage: 15 ML, SINGLE
     Route: 040
     Dates: start: 20230227, end: 20230227

REACTIONS (2)
  - Asthenia [Recovering/Resolving]
  - Movement disorder [Recovering/Resolving]

NARRATIVE: CASE EVENT DATE: 20230227
